FAERS Safety Report 20488454 (Version 6)
Quarter: 2024Q2

REPORT INFORMATION
  Report Type: Report from Study
  Country: JP (occurrence: JP)
  Receive Date: 20220218
  Receipt Date: 20240424
  Transmission Date: 20240716
  Serious: Yes (Life-Threatening, Hospitalization)
  Sender: FDA-Public Use
  Company Number: JP-ASTELLAS-2022JP002874

PATIENT
  Age: 79 Year
  Sex: Male
  Weight: 51.4 kg

DRUGS (4)
  1. ENFORTUMAB VEDOTIN-EJFV [Suspect]
     Active Substance: ENFORTUMAB VEDOTIN-EJFV
     Indication: Ureteric cancer
     Dosage: 1.25 MG/KG, ONCE-WEEKLY DOSING WAS CONTINUED FOR 3 CONSECUTIVE WEEKS, 4TH WEEK WAS INTERRUPTED
     Route: 041
     Dates: start: 20220124, end: 20220207
  2. ENFORTUMAB VEDOTIN-EJFV [Suspect]
     Active Substance: ENFORTUMAB VEDOTIN-EJFV
     Indication: Malignant neoplasm of renal pelvis
     Dosage: 1.0 MG/KG, ONCE-WEEKLY DOSING WAS CONTINUED FOR 3 CONSECUTIVE WEEKS, 4TH WEEK WAS INTERRUPTED
     Route: 041
     Dates: start: 20220316, end: 20220330
  3. ENFORTUMAB VEDOTIN-EJFV [Suspect]
     Active Substance: ENFORTUMAB VEDOTIN-EJFV
     Dosage: 1.0 MG/KG, ONCE-WEEKLY DOSING WAS CONTINUED FOR 3 CONSECUTIVE WEEKS, 4TH WEEK WAS INTERRUPTED
     Route: 041
     Dates: start: 20220803, end: 20220817
  4. FILGRASTIM [Concomitant]
     Active Substance: FILGRASTIM
     Indication: Neutrophil count decreased
     Route: 065
     Dates: start: 20220214, end: 20220214

REACTIONS (6)
  - Neutrophil count decreased [Recovered/Resolved]
  - Rash [Recovered/Resolved]
  - Alopecia [Recovered/Resolved]
  - Stomatitis [Recovered/Resolved]
  - Hypoaesthesia [Not Recovered/Not Resolved]
  - Taste disorder [Recovered/Resolved]

NARRATIVE: CASE EVENT DATE: 20220201
